FAERS Safety Report 9435832 (Version 1)
Quarter: 2013Q3

REPORT INFORMATION
  Report Type: Spontaneous
  Country: US (occurrence: None)
  Receive Date: 20130801
  Receipt Date: 20130801
  Transmission Date: 20140515
  Serious: Yes (Life-Threatening, Hospitalization, Other)
  Sender: FDA-Public Use
  Company Number: None

PATIENT
  Age: 58 None
  Sex: Male

DRUGS (4)
  1. JANUVIA [Suspect]
     Indication: DIABETES MELLITUS
     Dosage: X2 DAILY X1 DAILY
     Route: 048
  2. OMEPRAZOLE [Concomitant]
  3. OXYCODONE [Concomitant]
  4. METFORMIN [Concomitant]

REACTIONS (2)
  - Malaise [None]
  - Pancreatic carcinoma [None]
